FAERS Safety Report 22049457 (Version 1)
Quarter: 2023Q1

REPORT INFORMATION
  Report Type: Spontaneous
  Country: US (occurrence: US)
  Receive Date: 20230301
  Receipt Date: 20230301
  Transmission Date: 20230418
  Serious: Yes (Hospitalization)
  Sender: FDA-Public Use
  Company Number: US-BRISTOL-MYERS SQUIBB COMPANY-2023-030223

PATIENT
  Age: 81 Year
  Sex: Male
  Weight: 74.84 kg

DRUGS (1)
  1. ELIQUIS [Suspect]
     Active Substance: APIXABAN
     Indication: Cerebrovascular accident prophylaxis
     Dosage: FREQUENCY: TWO TIMES A DAY
     Route: 048

REACTIONS (3)
  - Product dose omission issue [Unknown]
  - Cardiac disorder [Unknown]
  - Animal bite [Unknown]

NARRATIVE: CASE EVENT DATE: 20230227
